FAERS Safety Report 19544416 (Version 1)
Quarter: 2021Q3

REPORT INFORMATION
  Report Type: Report from Study
  Country: IT (occurrence: IT)
  Receive Date: 20210713
  Receipt Date: 20210713
  Transmission Date: 20211014
  Serious: Yes (Other)
  Sender: FDA-Public Use
  Company Number: IT-US-PROVELL PHARMACEUTICALS LLC-9249093

PATIENT
  Sex: Female

DRUGS (1)
  1. EUTHYROX [Suspect]
     Active Substance: LEVOTHYROXINE SODIUM
     Indication: PRODUCT USED FOR UNKNOWN INDICATION

REACTIONS (8)
  - Failed induction of labour [Unknown]
  - Maternal exposure during pregnancy [Recovered/Resolved]
  - High risk pregnancy [Recovered/Resolved]
  - Fluid retention [Unknown]
  - Gestational diabetes [Unknown]
  - Live birth [Recovered/Resolved]
  - Renal impairment [Unknown]
  - Blood thyroid stimulating hormone increased [Unknown]
